FAERS Safety Report 11611236 (Version 3)
Quarter: 2016Q2

REPORT INFORMATION
  Report Type: Report from Study
  Country: TW (occurrence: TW)
  Receive Date: 20151008
  Receipt Date: 20160404
  Transmission Date: 20160815
  Serious: No
  Sender: FDA-Public Use
  Company Number: PHHY2015TW120829

PATIENT
  Age: 78 Year
  Sex: Male

DRUGS (20)
  1. CHLORPHENAMINE MALEATE [Concomitant]
     Active Substance: CHLORPHENIRAMINE MALEATE
     Indication: PRODUCT USED FOR UNKNOWN INDICATION
     Dosage: 5 MG, UNK
     Route: 042
     Dates: start: 20150528, end: 20150528
  2. XARELTO [Concomitant]
     Active Substance: RIVAROXABAN
     Indication: ANGINA UNSTABLE
     Dosage: 15 MG, UNK
     Route: 048
     Dates: start: 20150804, end: 20150812
  3. DICLOXACILLIN [Concomitant]
     Active Substance: DICLOXACILLIN
     Dosage: 500 MG, UNK
     Route: 048
     Dates: start: 20150706, end: 20150713
  4. GENTAMICIN. [Concomitant]
     Active Substance: GENTAMICIN
     Dosage: UNK
     Route: 061
     Dates: start: 20150720
  5. CLOPIDOGREL [Concomitant]
     Active Substance: CLOPIDOGREL BISULFATE
     Indication: ANGINA UNSTABLE
     Dosage: 75 MG, UNK
     Route: 048
     Dates: start: 20150804, end: 20150804
  6. TASIGNA [Suspect]
     Active Substance: NILOTINIB
     Indication: CHRONIC MYELOID LEUKAEMIA
     Dosage: 600 OT, UNK
     Route: 048
     Dates: start: 20150521
  7. IOHEXOL [Concomitant]
     Active Substance: IOHEXOL
     Indication: ANGINA UNSTABLE
     Dosage: 40 ML, UNK
     Route: 065
     Dates: start: 20150804, end: 20150804
  8. HYDROXYZINE [Concomitant]
     Active Substance: HYDROXYZINE\HYDROXYZINE HYDROCHLORIDE
     Indication: PRODUCT USED FOR UNKNOWN INDICATION
     Dosage: 25 MG, UNK
     Route: 048
     Dates: start: 20150622, end: 20150629
  9. IMDUR [Concomitant]
     Active Substance: ISOSORBIDE MONONITRATE
     Indication: ATRIAL FIBRILLATION
     Dosage: 30 MG, UNK
     Route: 048
     Dates: start: 20150706, end: 20150811
  10. GENTAMICIN. [Concomitant]
     Active Substance: GENTAMICIN
     Dosage: UNK
     Route: 061
     Dates: start: 20150629, end: 20150702
  11. DIMENHYDRINATE. [Concomitant]
     Active Substance: DIMENHYDRINATE
     Indication: ANGINA UNSTABLE
     Dosage: 50 MG, UNK
     Route: 048
     Dates: start: 20150803, end: 20150804
  12. DIPYRIDAMOLE. [Concomitant]
     Active Substance: DIPYRIDAMOLE
     Indication: ANGINA UNSTABLE
     Dosage: 75 MG, UNK
     Route: 048
     Dates: start: 20150803, end: 20150804
  13. HEPARIN [Concomitant]
     Active Substance: HEPARIN SODIUM
     Indication: ANGINA UNSTABLE
     Dosage: 15 KIU, UNK
     Route: 042
     Dates: start: 20150804, end: 20150804
  14. ASPIRIN. [Concomitant]
     Active Substance: ASPIRIN
     Indication: ATRIAL FIBRILLATION
     Dosage: 100 MG, UNK
     Route: 048
     Dates: start: 20150706, end: 20150811
  15. DICLOXACILLIN [Concomitant]
     Active Substance: DICLOXACILLIN
     Indication: PRODUCT USED FOR UNKNOWN INDICATION
     Dosage: 500 MG, UNK
     Route: 048
     Dates: start: 20150622, end: 20150629
  16. GENTAMICIN. [Concomitant]
     Active Substance: GENTAMICIN
     Dosage: UNK
     Route: 061
     Dates: start: 20150706, end: 20150709
  17. SENNOSIDE [Concomitant]
     Active Substance: SENNOSIDES
     Indication: PROPHYLAXIS
     Dosage: 12 MG, UNK
     Route: 048
     Dates: start: 20150720, end: 20150909
  18. VERAPAMIL [Concomitant]
     Active Substance: VERAPAMIL HYDROCHLORIDE
     Indication: ANGINA UNSTABLE
     Dosage: 1 MG, UNK
     Route: 065
     Dates: start: 20150804, end: 20150804
  19. LIDOCAINE HYDROCHLORIDE. [Concomitant]
     Active Substance: LIDOCAINE HYDROCHLORIDE
     Indication: ANGINA UNSTABLE
     Dosage: 100 MG, UNK
     Route: 065
     Dates: start: 20150804, end: 20150804
  20. GENTAMICIN. [Concomitant]
     Active Substance: GENTAMICIN
     Indication: BACTERIAL INFECTION
     Dosage: UNK
     Route: 061
     Dates: start: 20150622, end: 20150625

REACTIONS (1)
  - Insomnia [Recovered/Resolved]

NARRATIVE: CASE EVENT DATE: 20150804
